FAERS Safety Report 11816712 (Version 1)
Quarter: 2015Q4

REPORT INFORMATION
  Report Type: Spontaneous
  Country: US (occurrence: US)
  Receive Date: 20151210
  Receipt Date: 20151210
  Transmission Date: 20160305
  Serious: No
  Sender: FDA-Public Use
  Company Number: US-JNJFOC-20151019183

PATIENT
  Sex: Male
  Weight: 70 kg

DRUGS (1)
  1. CONCERTA [Suspect]
     Active Substance: METHYLPHENIDATE HYDROCHLORIDE
     Indication: ATTENTION DEFICIT/HYPERACTIVITY DISORDER
     Route: 048
     Dates: end: 20150929

REACTIONS (5)
  - Impulsive behaviour [Unknown]
  - Hypokinesia [Unknown]
  - Product difficult to swallow [Unknown]
  - Sensory disturbance [Unknown]
  - Depression [Unknown]
